FAERS Safety Report 19481870 (Version 1)
Quarter: 2021Q2

REPORT INFORMATION
  Report Type: Spontaneous
  Country: US (occurrence: US)
  Receive Date: 20210630
  Receipt Date: 20210630
  Transmission Date: 20210717
  Serious: No
  Sender: FDA-Public Use
  Company Number: None

PATIENT
  Sex: Female

DRUGS (1)
  1. ENBREL [Suspect]
     Active Substance: ETANERCEPT
     Indication: RHEUMATOID ARTHRITIS
     Route: 058
     Dates: start: 20200901

REACTIONS (6)
  - Condition aggravated [None]
  - Pain in extremity [None]
  - Therapeutic product effect variable [None]
  - Headache [None]
  - Joint swelling [None]
  - Arthralgia [None]
